FAERS Safety Report 21265155 (Version 1)
Quarter: 2022Q3

REPORT INFORMATION
  Report Type: Spontaneous
  Country: US (occurrence: US)
  Receive Date: 20220829
  Receipt Date: 20220829
  Transmission Date: 20221026
  Serious: Yes (Hospitalization)
  Sender: FDA-Public Use
  Company Number: US-BIOCODEX2-202000868

PATIENT
  Age: 20 Year
  Sex: Female
  Weight: 82.1 kg

DRUGS (31)
  1. DIACOMIT [Suspect]
     Active Substance: STIRIPENTOL
     Indication: Seizure
     Dosage: 1500 MG TWICE DAILY
     Dates: start: 20200204
  2. DIACOMIT [Suspect]
     Active Substance: STIRIPENTOL
     Indication: Seizure
     Dosage: 1500 MG TWICE DAILY
     Route: 048
     Dates: start: 20200204
  3. DIACOMIT [Suspect]
     Active Substance: STIRIPENTOL
     Indication: Seizure
     Dosage: 1500 MG TWICE DAILY
     Route: 048
  4. DIACOMIT [Suspect]
     Active Substance: STIRIPENTOL
     Indication: Seizure
     Dosage: TAKE THREE CAPSULES, TWICE A DAY BY ORAL ROUTE AS DIRECTED FOR 30 DAYS
     Route: 048
  5. CLOBAZAM [Concomitant]
     Active Substance: CLOBAZAM
     Indication: Seizure
     Route: 065
  6. BANZEL [Concomitant]
     Active Substance: RUFINAMIDE
     Indication: Seizure
     Dosage: 400 MG TWICE DAILY
     Route: 048
     Dates: start: 202002
  7. BANZEL [Concomitant]
     Active Substance: RUFINAMIDE
     Indication: Seizure
     Dosage: 600 MG TWICE DAILY
     Route: 048
     Dates: start: 20210329
  8. CLONAZEPAM [Concomitant]
     Active Substance: CLONAZEPAM
     Indication: Seizure
     Dosage: 0.25 TWICE DAILY
     Route: 048
     Dates: start: 2012
  9. CLONAZEPAM [Concomitant]
     Active Substance: CLONAZEPAM
     Indication: Seizure
     Dosage: 0.125 TWICE DAILY
     Route: 048
  10. DIASTAT AcuDial 20 mg rectal kit 15 mg [Concomitant]
     Indication: Seizure
     Dosage: ONCE AS NEEDED
     Route: 054
     Dates: start: 2003
  11. DEPAKOTE [Concomitant]
     Active Substance: DIVALPROEX SODIUM
     Indication: Product used for unknown indication
     Dosage: 250 MG TWICE DAILY
     Route: 048
  12. DEPAKOTE [Concomitant]
     Active Substance: DIVALPROEX SODIUM
     Indication: Product used for unknown indication
     Dosage: 500 MG TWICE DAILY
     Route: 048
  13. EPIDIOLEX [Concomitant]
     Active Substance: CANNABIDIOL
     Indication: Seizure
     Dosage: 400 MG TWICE DAILY
     Route: 048
  14. KEPPRA [Concomitant]
     Active Substance: LEVETIRACETAM
     Indication: Seizure
     Dosage: 1500 MG IN THE MORNING AND 2000 MG IN THE EVENING
     Route: 048
  15. KEPPRA [Concomitant]
     Active Substance: LEVETIRACETAM
     Indication: Seizure
     Dosage: 2000 MG ONCE A DAY IN THE EVENING
     Route: 048
  16. LEVOTHYROXINE SODIUM [Concomitant]
     Active Substance: LEVOTHYROXINE SODIUM
     Indication: Hypothyroidism
     Route: 048
     Dates: start: 201612
  17. NORETHINDRONE ACETATE [Concomitant]
     Active Substance: NORETHINDRONE ACETATE
     Indication: Product used for unknown indication
     Route: 048
     Dates: start: 2016
  18. ZOFRAN [Concomitant]
     Active Substance: ONDANSETRON HYDROCHLORIDE
     Indication: Nausea
     Dosage: 4 MG EVERY 8 HOURS AS NEEDED
     Route: 048
  19. OXYBUTYNIN CHLORIDE [Concomitant]
     Active Substance: OXYBUTYNIN CHLORIDE
     Indication: Product used for unknown indication
     Route: 065
  20. MIRALAX [Concomitant]
     Active Substance: POLYETHYLENE GLYCOL 3350
     Indication: Constipation
     Dosage: ONCE A DAY AS NEEDED, FOR CONSTIPATION
     Route: 048
  21. TRAZODONE [Concomitant]
     Active Substance: TRAZODONE HYDROCHLORIDE
     Indication: Product used for unknown indication
     Dosage: BY MOUTH ONCE A DAY AT BEDTIME
     Route: 048
  22. LEVOCARNITINE [Concomitant]
     Active Substance: LEVOCARNITINE
     Indication: Carnitine deficiency
     Dosage: 6.6 ML (660 MG) TWICE DAILY
     Route: 048
  23. ZYRTEC [Concomitant]
     Active Substance: CETIRIZINE HYDROCHLORIDE
     Indication: Hypersensitivity
     Dosage: ONE TABLET OF 5 MG DAILY AS NEEDED
     Route: 048
  24. FINTEPLA [Concomitant]
     Active Substance: FENFLURAMINE
     Indication: Product used for unknown indication
     Route: 065
  25. VITAMIN B6 [Concomitant]
     Active Substance: PYRIDOXINE HYDROCHLORIDE
     Indication: Product used for unknown indication
     Route: 048
  26. VITAMIN C [Concomitant]
     Active Substance: ASCORBIC ACID
     Indication: Product used for unknown indication
     Route: 065
  27. CHOLECALCIFEROL [Concomitant]
     Active Substance: CHOLECALCIFEROL
     Indication: Product used for unknown indication
     Dosage: 4000 IU EVERY MORNING
     Route: 048
  28. MELATONIN [Concomitant]
     Active Substance: MELATONIN
     Indication: Product used for unknown indication
     Dosage: AT BEDTIME
     Route: 048
  29. NAYZILAM [Concomitant]
     Active Substance: MIDAZOLAM
     Indication: Seizure
     Dosage: 5 MG NASAL AS NEEDED FOR SEIZURES
     Route: 045
  30. DIVALPROEX SODIUM [Concomitant]
     Active Substance: DIVALPROEX SODIUM
     Indication: Seizure
     Route: 048
     Dates: start: 20210329
  31. PYRIDOXINE [Concomitant]
     Active Substance: PYRIDOXINE
     Indication: Product used for unknown indication
     Dosage: TAKE BY MOUTH ONCE A DAY

REACTIONS (7)
  - Weight decreased [Unknown]
  - Decreased appetite [Recovered/Resolved]
  - Seizure [Recovered/Resolved]
  - Product dose omission issue [Unknown]
  - Illness [Unknown]
  - Product use in unapproved indication [Unknown]
  - Blood iron increased [Unknown]

NARRATIVE: CASE EVENT DATE: 20200101
